FAERS Safety Report 7783080-5 (Version None)
Quarter: 2011Q3

REPORT INFORMATION
  Report Type: 
  Country: None (occurrence: None)
  Receive Date: 20110926
  Receipt Date: 20110913
  Transmission Date: 20111222
  Serious: No
  Sender: FDA-Public Use
  Company Number: B0749341A

PATIENT
  Sex: Female

DRUGS (2)
  1. MELPHALAN HYDROCHLORIDE [Suspect]
     Indication: MALIGNANT MELANOMA
     Dosage: SINGLE DOSE / CATHETER
  2. DACTINOMYCIN [Suspect]
     Indication: MALIGNANT MELANOMA
     Dosage: CATHETER

REACTIONS (2)
  - TOXICITY TO VARIOUS AGENTS [None]
  - EPIDERMOLYSIS [None]
